FAERS Safety Report 5215644-7 (Version None)
Quarter: 2007Q1

REPORT INFORMATION
  Report Type: 
  Country: None (occurrence: None)
  Receive Date: 20070123
  Receipt Date: 20070116
  Transmission Date: 20070707
  Serious: Yes (Hospitalization)
  Sender: FDA-Public Use
  Company Number: IL-BRISTOL-MYERS SQUIBB COMPANY-13249214

PATIENT
  Age: 56 Year
  Sex: Female
  Weight: 100 kg

DRUGS (6)
  1. IRBESARTAN [Suspect]
     Indication: HYPERTENSION
     Dates: start: 20050630, end: 20060305
  2. BLINDED: PLACEBO [Suspect]
     Indication: HYPERTENSION
     Dates: start: 20050630, end: 20060305
  3. CLOPIDOGREL BISULFATE [Suspect]
     Indication: PROPHYLAXIS
     Dates: start: 20050630, end: 20051006
  4. ASPIRIN [Suspect]
     Indication: PROPHYLAXIS
     Dates: start: 20050630, end: 20051006
  5. OFLOXACIN [Suspect]
     Dosage: OFLOXACIN TAKEN PRIOR TO HOSP ADMITT, 12-DEC-2005 TWO TABS.
     Dates: start: 20051211, end: 20051214
  6. CEFUROXIME [Concomitant]
     Route: 048

REACTIONS (3)
  - ANGIOEDEMA [None]
  - BRONCHOSPASM [None]
  - DYSPNOEA [None]
